FAERS Safety Report 4421704-0 (Version None)
Quarter: 2004Q3

REPORT INFORMATION
  Report Type: 
  Country: None (occurrence: None)
  Receive Date: 20040804
  Receipt Date: 20040726
  Transmission Date: 20050211
  Serious: Yes (Hospitalization)
  Sender: FDA-Public Use
  Company Number: A001-002-005060

PATIENT
  Age: 42 Year
  Sex: Male
  Weight: 109 kg

DRUGS (3)
  1. ARICEPT [Suspect]
     Indication: MEDICATION ERROR
     Dosage: 40 MG, 4 IN 1 D, PER ORAL
     Route: 048
     Dates: start: 20011201, end: 20011201
  2. ATENOLOL [Concomitant]
  3. CELEBREX (CELECOXIB-B) [Concomitant]

REACTIONS (17)
  - ABDOMINAL PAIN [None]
  - ASTHENIA [None]
  - COORDINATION ABNORMAL [None]
  - DIARRHOEA [None]
  - DISTURBANCE IN ATTENTION [None]
  - DIZZINESS [None]
  - DYSARTHRIA [None]
  - HEADACHE [None]
  - HYPERHIDROSIS [None]
  - IRRITABILITY [None]
  - JUDGEMENT IMPAIRED [None]
  - MEDICATION ERROR [None]
  - NAUSEA [None]
  - PAIN [None]
  - PHONOPHOBIA [None]
  - RESTLESSNESS [None]
  - THERAPEUTIC AGENT TOXICITY [None]
